FAERS Safety Report 4505936-9 (Version None)
Quarter: 2004Q4

REPORT INFORMATION
  Report Type: 
  Country: None (occurrence: None)
  Receive Date: 20041119
  Receipt Date: 20041108
  Transmission Date: 20050328
  Serious: Yes (Other)
  Sender: FDA-Public Use
  Company Number: PHBS2004GB15312

PATIENT
  Sex: Female

DRUGS (2)
  1. ZOLEDRONIC ACID [Suspect]
     Dosage: 4 MG, SIX 4-WEEKLY CYCLES
     Route: 042
     Dates: start: 20020201
  2. ZOLEDRONIC ACID [Suspect]
     Dosage: EVERY THREE MONTHS
     Route: 042
     Dates: start: 20030101

REACTIONS (3)
  - BLOOD CREATININE INCREASED [None]
  - METASTASES TO LUNG [None]
  - RENAL CELL CARCINOMA STAGE UNSPECIFIED [None]
